FAERS Safety Report 10393728 (Version 2)
Quarter: 2014Q4

REPORT INFORMATION
  Report Type: Spontaneous
  Country: FR (occurrence: FR)
  Receive Date: 20140819
  Receipt Date: 20141104
  Transmission Date: 20150528
  Serious: Yes (Hospitalization, Other)
  Sender: FDA-Public Use
  Company Number: FR-PFIZER INC-2014226267

PATIENT
  Age: 66 Year
  Sex: Male

DRUGS (23)
  1. SUTENT [Suspect]
     Active Substance: SUNITINIB MALATE
     Dosage: 50 MG DAILY, 4 WEEKS OUT OF 6, CYCLE 2
     Route: 048
     Dates: start: 20140519, end: 20140613
  2. AMLODIPINE [Concomitant]
     Active Substance: AMLODIPINE BESYLATE
  3. CARDENSIEL [Concomitant]
     Active Substance: BISOPROLOL FUMARATE
     Dosage: 3.75 MG, DAILY (2.5 MG IN THE MORNING, 1.25 MG IN THE EVENING)
  4. IMOVANE [Concomitant]
     Active Substance: ZOPICLONE
     Dosage: 3.75 MG, 1X/DAY, IN THE EVENING
  5. APROVEL [Concomitant]
     Active Substance: IRBESARTAN
     Indication: BLOOD PRESSURE INCREASED
  6. UVEDOSE [Concomitant]
     Active Substance: CHOLECALCIFEROL
  7. INEXIUM [Concomitant]
     Active Substance: ESOMEPRAZOLE
  8. THERALENE [Concomitant]
     Active Substance: TRIMEPRAZINE
  9. SPASFON [Concomitant]
     Active Substance: PHLOROGLUCINOL
  10. XGEVA [Concomitant]
     Active Substance: DENOSUMAB
     Dosage: EVERY 28 DAYS
  11. CORTANCYL [Concomitant]
     Active Substance: PREDNISONE
  12. TOPALGIC [Concomitant]
     Active Substance: TRAMADOL
  13. SUTENT [Suspect]
     Active Substance: SUNITINIB MALATE
     Dosage: 50 MG DAILY FOR TWO WEEKS FOLLOWED BY ONE WEEK OF REST PERIOD
     Dates: start: 20140630, end: 20140713
  14. ALLOPURINOL. [Concomitant]
     Active Substance: ALLOPURINOL
  15. CELLCEPT [Concomitant]
     Active Substance: MYCOPHENOLATE MOFETIL\MYCOPHENOLATE MOFETIL HYDROCHLORIDE
  16. CACIT VITAMINE D3 [Concomitant]
     Active Substance: CALCIUM CARBONATE\CHOLECALCIFEROL
  17. LYRICA [Concomitant]
     Active Substance: PREGABALIN
  18. XANAX [Concomitant]
     Active Substance: ALPRAZOLAM
  19. CALCIPARINE [Concomitant]
     Active Substance: HEPARIN CALCIUM
  20. DIOSMECTITE (SMECTA) [Concomitant]
  21. PROGRAF [Concomitant]
     Active Substance: TACROLIMUS\TACROLIMUS ANHYDROUS
  22. SUTENT [Suspect]
     Active Substance: SUNITINIB MALATE
     Indication: RENAL CANCER METASTATIC
     Dosage: 50 MG DAILY, 4 WEEKS OUT OF 6, CYCLE 1
     Route: 048
     Dates: start: 20140407, end: 2014
  23. IMODIUM [Concomitant]
     Active Substance: LOPERAMIDE HYDROCHLORIDE
     Dosage: UNK

REACTIONS (11)
  - Urinary retention [Recovered/Resolved with Sequelae]
  - Abdominal pain upper [Unknown]
  - Pancytopenia [Recovered/Resolved]
  - Dehydration [Unknown]
  - Hypotension [Unknown]
  - Acute kidney injury [Recovered/Resolved]
  - Hypertension [Recovered/Resolved]
  - Palmar-plantar erythrodysaesthesia syndrome [Unknown]
  - Diarrhoea [Recovered/Resolved]
  - Vomiting [Unknown]
  - Nausea [Unknown]

NARRATIVE: CASE EVENT DATE: 20140407
